FAERS Safety Report 9478487 (Version 3)
Quarter: 2013Q4

REPORT INFORMATION
  Report Type: Spontaneous
  Country: US (occurrence: US)
  Receive Date: 20130827
  Receipt Date: 20131022
  Transmission Date: 20140711
  Serious: Yes (Other)
  Sender: FDA-Public Use
  Company Number: US-009507513-1308USA011970

PATIENT
  Sex: Male

DRUGS (6)
  1. PEGINTRON [Suspect]
     Indication: HEPATITIS C
     Dosage: DOSE FORM UNKNOWN
     Dates: start: 20130722
  2. PEGINTRON [Suspect]
     Dosage: DOSE FORM UNKNOWN
     Dates: start: 20130815
  3. REBETOL [Suspect]
     Indication: HEPATITIS C
     Dosage: UNK
     Route: 048
     Dates: start: 20130722
  4. REBETOL [Suspect]
     Dosage: UNK
     Route: 048
     Dates: start: 20130815
  5. VICTRELIS [Suspect]
     Indication: HEPATITIS C
     Dosage: UNK
     Route: 048
     Dates: start: 20130819
  6. VICTRELIS [Suspect]
     Dosage: UNK
     Route: 048
     Dates: start: 20130912

REACTIONS (21)
  - Hunger [Unknown]
  - Hypoaesthesia [Unknown]
  - Paraesthesia [Unknown]
  - Mood swings [Unknown]
  - Hypertension [Unknown]
  - Irritability [Unknown]
  - Mood altered [Unknown]
  - Thirst [Not Recovered/Not Resolved]
  - Muscle spasms [Not Recovered/Not Resolved]
  - Influenza like illness [Not Recovered/Not Resolved]
  - Insomnia [Unknown]
  - Abdominal pain upper [Unknown]
  - Flatulence [Unknown]
  - Nausea [Unknown]
  - Abdominal discomfort [Unknown]
  - Memory impairment [Unknown]
  - Muscular weakness [Unknown]
  - Constipation [Unknown]
  - Diarrhoea [Unknown]
  - Blood pressure increased [Unknown]
  - Fatigue [Unknown]
